FAERS Safety Report 23677845 (Version 1)
Quarter: 2024Q1

REPORT INFORMATION
  Report Type: Spontaneous
  Country: IT (occurrence: None)
  Receive Date: 20240327
  Receipt Date: 20240327
  Transmission Date: 20240410
  Serious: Yes (Other)
  Sender: FDA-Public Use
  Company Number: None

PATIENT
  Age: 54 Year
  Sex: Female
  Weight: 48 kg

DRUGS (6)
  1. ALECENSA [Suspect]
     Active Substance: ALECTINIB HYDROCHLORIDE
     Indication: Lung neoplasm
     Route: 065
     Dates: start: 20240209, end: 20240307
  2. ALECENSA [Suspect]
     Active Substance: ALECTINIB HYDROCHLORIDE
     Route: 065
     Dates: start: 20231020, end: 20231116
  3. ALECENSA [Suspect]
     Active Substance: ALECTINIB HYDROCHLORIDE
     Route: 065
     Dates: start: 20231117, end: 20231214
  4. ALECENSA [Suspect]
     Active Substance: ALECTINIB HYDROCHLORIDE
     Route: 065
     Dates: start: 20231215, end: 20240111
  5. ALECENSA [Suspect]
     Active Substance: ALECTINIB HYDROCHLORIDE
     Route: 065
     Dates: start: 20240112, end: 20240208
  6. PALEXIA [Concomitant]
     Active Substance: TAPENTADOL HYDROCHLORIDE

REACTIONS (6)
  - Syncope [Recovered/Resolved]
  - Asthenia [Unknown]
  - Peripheral swelling [Unknown]
  - Constipation [Unknown]
  - Hypertransaminasaemia [Unknown]
  - Fatigue [Unknown]

NARRATIVE: CASE EVENT DATE: 20231020
